FAERS Safety Report 15950142 (Version 4)
Quarter: 2019Q1

REPORT INFORMATION
  Report Type: Report from Study
  Country: FR (occurrence: FR)
  Receive Date: 20190212
  Receipt Date: 20190306
  Transmission Date: 20190417
  Serious: Yes (Hospitalization, Other)
  Sender: FDA-Public Use
  Company Number: PHHO2019FR001665

PATIENT
  Age: 66 Year
  Sex: Female
  Weight: 72 kg

DRUGS (57)
  1. VANCOMYCINE [Concomitant]
     Active Substance: VANCOMYCIN
     Indication: FEBRILE NEUTROPENIA
     Route: 065
     Dates: start: 20181222, end: 20190102
  2. PHLOROGLUCINOL [Concomitant]
     Active Substance: PHLOROGLUCINOL
     Indication: DUODENITIS
  3. NUTRYELT [Concomitant]
     Active Substance: IRON\MINERALS\POTASSIUM IOD\SODIUM FLUORIDE\SODIUM MOLYBDATE\SODIUM SELENITE\ZINC
     Indication: MUCOSAL INFLAMMATION
  4. BETAMETHASONE. [Concomitant]
     Active Substance: BETAMETHASONE
     Dates: start: 20181222, end: 20181228
  5. METRONIDAZOLE. [Concomitant]
     Active Substance: METRONIDAZOLE
     Indication: INTUSSUSCEPTION
     Dates: start: 20181224, end: 20190103
  6. ZOPHREN [Concomitant]
     Active Substance: ONDANSETRON
     Indication: NAUSEA
     Route: 065
     Dates: start: 20181219, end: 20181226
  7. LASILIX [Concomitant]
     Active Substance: FUROSEMIDE
     Indication: PROPHYLAXIS
     Dosage: UNK
     Route: 065
     Dates: start: 20181226, end: 20181227
  8. ACICLOVIR [Concomitant]
     Active Substance: ACYCLOVIR
     Indication: PROPHYLAXIS
     Route: 065
     Dates: start: 20181223, end: 20190103
  9. ZOLPIDEM [Concomitant]
     Active Substance: ZOLPIDEM\ZOLPIDEM TARTRATE
     Indication: ANXIETY
     Route: 065
     Dates: start: 20181216
  10. CEFTAZIDIME. [Concomitant]
     Active Substance: CEFTAZIDIME
     Indication: FEBRILE NEUTROPENIA
     Route: 065
     Dates: start: 20181222, end: 20190104
  11. SODIUM PHOSPHATE MONOBASIC [Concomitant]
     Active Substance: SODIUM PHOSPHATE, MONOBASIC
     Indication: BLOOD PHOSPHORUS DECREASED
     Route: 065
     Dates: start: 20181224, end: 20181225
  12. ABASAGLAR [Concomitant]
     Active Substance: INSULIN GLARGINE
     Indication: DIABETES MELLITUS
     Route: 065
     Dates: start: 20190111
  13. LANTUS [Concomitant]
     Active Substance: INSULIN GLARGINE
     Indication: DIABETES MELLITUS
     Route: 065
     Dates: start: 20181229, end: 20181229
  14. UMULINE [Concomitant]
     Active Substance: INSULIN HUMAN
     Indication: DIABETES MELLITUS
     Route: 065
     Dates: start: 20181230, end: 20190107
  15. SODIUM ALGINATE [Concomitant]
     Active Substance: SODIUM ALGINATE
     Indication: DUODENITIS
     Route: 065
     Dates: start: 20181230, end: 20190131
  16. DESLORATADINE. [Concomitant]
     Active Substance: DESLORATADINE
     Indication: PRURITUS
     Route: 065
     Dates: start: 20181220, end: 20181222
  17. HEPARIN [Concomitant]
     Active Substance: HEPARIN SODIUM
     Indication: GENERAL PHYSICAL HEALTH DETERIORATION
     Route: 065
     Dates: start: 20181212
  18. COMPARATOR CYTARABINE [Suspect]
     Active Substance: CYTARABINE
     Indication: ACUTE MYELOID LEUKAEMIA
     Dosage: UNK
     Route: 042
     Dates: start: 20181211
  19. ACUPAN [Concomitant]
     Active Substance: NEFOPAM HYDROCHLORIDE
     Indication: HAEMORRHOIDS
     Dosage: UNK
     Route: 065
     Dates: start: 20190101, end: 20190111
  20. URAPIDIL [Concomitant]
     Active Substance: URAPIDIL
     Indication: HYPERTENSION
     Route: 065
     Dates: start: 20181203
  21. NUTRYELT [Concomitant]
     Active Substance: IRON\MINERALS\POTASSIUM IOD\SODIUM FLUORIDE\SODIUM MOLYBDATE\SODIUM SELENITE\ZINC
     Indication: DYSPHAGIA
     Route: 065
     Dates: start: 20181224, end: 20181230
  22. CERNEVIT [Concomitant]
     Active Substance: VITAMINS
     Indication: DYSPHAGIA
  23. PRIMPERAN [Concomitant]
     Active Substance: METOCLOPRAMIDE HYDROCHLORIDE
     Dates: start: 20190104, end: 20190108
  24. PARACETAMOL [Concomitant]
     Active Substance: ACETAMINOPHEN
     Indication: HAEMORRHOIDS
     Dosage: UNK
     Route: 065
     Dates: start: 20181227, end: 20181227
  25. MORPHINE [Concomitant]
     Active Substance: MORPHINE
     Indication: HAEMORRHOIDS
  26. METFORMINE [Concomitant]
     Active Substance: METFORMIN HYDROCHLORIDE
     Indication: DIABETES MELLITUS
     Route: 065
     Dates: start: 20181001, end: 20181224
  27. EXACYL [Concomitant]
     Active Substance: TRANEXAMIC ACID
     Indication: RECTAL HAEMORRHAGE
     Route: 065
     Dates: start: 20190104, end: 20190108
  28. ROCEPHINE [Concomitant]
     Active Substance: CEFTRIAXONE SODIUM
     Indication: FEBRILE NEUTROPENIA
     Route: 065
     Dates: start: 20181219, end: 20181221
  29. PHLOROGLUCINOL [Concomitant]
     Active Substance: PHLOROGLUCINOL
     Indication: INTUSSUSCEPTION
     Route: 065
     Dates: start: 20181223, end: 20190108
  30. LANSOPRAZOLE. [Concomitant]
     Active Substance: LANSOPRAZOLE
     Indication: DUODENITIS
     Dates: start: 20181231
  31. COMPARATOR IDARUBICIN [Suspect]
     Active Substance: IDARUBICIN
     Indication: ACUTE MYELOID LEUKAEMIA
     Dosage: UNK
     Route: 042
     Dates: start: 20181211
  32. ZELITREX [Concomitant]
     Active Substance: VALACYCLOVIR HYDROCHLORIDE
     Indication: PROPHYLAXIS
     Route: 065
     Dates: start: 20181206, end: 20181223
  33. ALPRAZOLAM. [Concomitant]
     Active Substance: ALPRAZOLAM
     Indication: ANXIETY
     Route: 065
     Dates: start: 20181203, end: 20181224
  34. PARACETAMOL [Concomitant]
     Active Substance: ACETAMINOPHEN
     Indication: FEBRILE NEUTROPENIA
     Dosage: UNK
     Route: 065
     Dates: start: 20181222, end: 20190111
  35. LASILIX [Concomitant]
     Active Substance: FUROSEMIDE
     Indication: PULMONARY OEDEMA
     Dosage: UNK
     Dates: start: 20190108, end: 20190112
  36. METFORMINE [Concomitant]
     Active Substance: METFORMIN HYDROCHLORIDE
     Dates: start: 20190107, end: 20190108
  37. JANUVIA [Concomitant]
     Active Substance: SITAGLIPTIN PHOSPHATE
     Indication: DIABETES MELLITUS
     Dosage: UNK
     Route: 065
     Dates: start: 20181001, end: 20181226
  38. NOVORAPID [Concomitant]
     Active Substance: INSULIN ASPART
     Indication: DIABETES MELLITUS
     Route: 065
     Dates: start: 20181227, end: 20181230
  39. TITANOREINE [Concomitant]
     Active Substance: CARRAGEENAN\TITANIUM\ZINC
     Indication: HAEMORRHOIDS
     Route: 065
     Dates: start: 20181225, end: 20181229
  40. CGP 41251 [Suspect]
     Active Substance: MIDOSTAURIN
     Indication: ACUTE MYELOID LEUKAEMIA
     Dosage: 50 MG, BID
     Route: 048
     Dates: start: 20181219, end: 20190204
  41. ALLOPURINOL. [Concomitant]
     Active Substance: ALLOPURINOL
     Indication: PROPHYLAXIS
     Route: 065
     Dates: start: 20181207, end: 20181220
  42. PRIMPERAN [Concomitant]
     Active Substance: METOCLOPRAMIDE HYDROCHLORIDE
     Indication: NAUSEA
     Route: 065
     Dates: start: 20181222, end: 20181226
  43. MORPHINE [Concomitant]
     Active Substance: MORPHINE
     Indication: PULMONARY OEDEMA
     Route: 065
     Dates: start: 20181226, end: 20181226
  44. TRAMADOL. [Concomitant]
     Active Substance: TRAMADOL
     Indication: MUSCULOSKELETAL PAIN
     Route: 065
     Dates: start: 20190111, end: 20190111
  45. MAGNESIUM [Concomitant]
     Active Substance: MAGNESIUM
     Indication: HYPOMAGNESAEMIA
     Route: 065
     Dates: start: 20181217, end: 20190111
  46. AMIKLIN [Concomitant]
     Active Substance: AMIKACIN SULFATE
     Indication: FEBRILE NEUTROPENIA
     Route: 065
     Dates: start: 20181219, end: 20181221
  47. JANUVIA [Concomitant]
     Active Substance: SITAGLIPTIN PHOSPHATE
     Dosage: UNK
     Route: 065
     Dates: start: 20190108, end: 20190110
  48. NOVORAPID [Concomitant]
     Active Substance: INSULIN ASPART
     Dates: start: 20190107
  49. ISOSORBIDE DINITRATE. [Concomitant]
     Active Substance: ISOSORBIDE DINITRATE
     Indication: PULMONARY OEDEMA
     Route: 065
     Dates: start: 20181226, end: 20181226
  50. ZELITREX [Concomitant]
     Active Substance: VALACYCLOVIR HYDROCHLORIDE
     Dosage: UNK
     Dates: start: 20190104
  51. ACUPAN [Concomitant]
     Active Substance: NEFOPAM HYDROCHLORIDE
     Indication: INTUSSUSCEPTION
     Dosage: UNK
     Route: 065
     Dates: start: 20181223, end: 20181229
  52. POLARAMINE [Concomitant]
     Active Substance: DEXCHLORPHENIRAMINE MALEATE
     Indication: PRURITUS
     Dates: start: 20181217, end: 20181229
  53. CHLORURE POTASSIUM [Concomitant]
     Indication: HYPOKALAEMIA
     Route: 065
     Dates: start: 20181226, end: 20190111
  54. DIFFU K [Concomitant]
     Active Substance: POTASSIUM CHLORIDE
     Indication: HYPOKALAEMIA
     Route: 065
     Dates: start: 20190111
  55. AMBISOME [Concomitant]
     Active Substance: AMPHOTERICIN B
     Indication: FEBRILE NEUTROPENIA
     Route: 065
     Dates: start: 20181225, end: 20181230
  56. VITAMIN K1 [Concomitant]
     Active Substance: PHYTONADIONE
     Indication: HAEMORRHAGE PROPHYLAXIS
     Dates: start: 20181223, end: 20190106
  57. CERNEVIT [Concomitant]
     Active Substance: VITAMINS
     Indication: MUCOSAL INFLAMMATION
     Dates: start: 20181224, end: 20190106

REACTIONS (1)
  - Hepatosplenic candidiasis [Not Recovered/Not Resolved]

NARRATIVE: CASE EVENT DATE: 20190109
